FAERS Safety Report 8075621-8 (Version None)
Quarter: 2012Q1

REPORT INFORMATION
  Report Type: 
  Country: None (occurrence: None)
  Receive Date: 20120127
  Receipt Date: 20110719
  Transmission Date: 20120608
  Serious: No
  Sender: FDA-Public Use
  Company Number: US-GLAXOSMITHKLINE-A0937339A

PATIENT
  Age: 19 Year
  Sex: Female

DRUGS (3)
  1. BACTRIM [Concomitant]
  2. MEPRON [Suspect]
     Indication: LYME DISEASE
     Dosage: .5TSP TWICE PER DAY
     Route: 048
  3. AZITHROMYCIN [Concomitant]

REACTIONS (1)
  - ABDOMINAL PAIN UPPER [None]
